FAERS Safety Report 8876857 (Version 2)
Quarter: 2013Q3

REPORT INFORMATION
  Report Type: Spontaneous
  Country: US (occurrence: US)
  Receive Date: 20121023
  Receipt Date: 20130821
  Transmission Date: 20140515
  Serious: Yes (Hospitalization, Disabling)
  Sender: FDA-Public Use
  Company Number: US-AMGEN-USASP2012053973

PATIENT
  Age: 58 Year
  Sex: Female
  Weight: 101.13 kg

DRUGS (5)
  1. ENBREL [Suspect]
     Indication: RHEUMATOID ARTHRITIS
     Dosage: 50 MG, QWK
     Route: 058
  2. VITAMIN C                          /00008001/ [Concomitant]
     Dosage: 500 MG, UNK
  3. NORCO [Concomitant]
     Dosage: 5-325MG
  4. HYDROCHLOROTHIAZIDE WITH TRIAMTERENE [Concomitant]
     Dosage: 25-37.5
  5. B 12 [Concomitant]
     Dosage: 1 MG, UNK

REACTIONS (5)
  - Patella fracture [Recovering/Resolving]
  - Diverticulitis [Unknown]
  - Pneumonia [Recovered/Resolved]
  - Bronchopneumonia [Unknown]
  - Rheumatoid arthritis [Unknown]
